FAERS Safety Report 22126485 (Version 1)
Quarter: 2023Q1

REPORT INFORMATION
  Report Type: Spontaneous
  Country: CN (occurrence: None)
  Receive Date: 20230322
  Receipt Date: 20230322
  Transmission Date: 20230417
  Serious: Yes (Life-Threatening, Hospitalization, Other)
  Sender: FDA-Public Use
  Company Number: 2023A066132

PATIENT
  Age: 56 Year
  Sex: Male

DRUGS (4)
  1. OSIMERTINIB [Suspect]
     Active Substance: OSIMERTINIB
     Indication: Lung adenocarcinoma
     Route: 048
  2. OSIMERTINIB [Suspect]
     Active Substance: OSIMERTINIB
     Indication: Lung adenocarcinoma
     Route: 048
  3. PEMETREXED [Suspect]
     Active Substance: PEMETREXED
     Dates: start: 201802, end: 201803
  4. CISPLATIN [Suspect]
     Active Substance: CISPLATIN
     Dates: start: 201802, end: 201803

REACTIONS (6)
  - Myelosuppression [Recovering/Resolving]
  - Pulmonary toxicity [Recovering/Resolving]
  - Interstitial lung disease [Recovering/Resolving]
  - Pneumonia [Recovering/Resolving]
  - Stomatitis [Recovered/Resolved]
  - Rash [Recovered/Resolved]
